FAERS Safety Report 10082465 (Version 1)
Quarter: 2014Q2

REPORT INFORMATION
  Report Type: Report from Study
  Country: AR (occurrence: AR)
  Receive Date: 20140416
  Receipt Date: 20140416
  Transmission Date: 20141212
  Serious: Yes (Death, Hospitalization)
  Sender: FDA-Public Use
  Company Number: PHHY2014AR046699

PATIENT
  Age: 19 Year
  Sex: Male

DRUGS (2)
  1. TOBI [Suspect]
     Indication: CYSTIC FIBROSIS
     Dosage: 2 UKN, A DAY
  2. TOBI [Suspect]
     Indication: PSEUDOMONAS INFECTION

REACTIONS (2)
  - Death [Fatal]
  - Viral infection [Unknown]
